FAERS Safety Report 5835333-5 (Version None)
Quarter: 2008Q3

REPORT INFORMATION
  Report Type: 
  Country: None (occurrence: None)
  Receive Date: 20080804
  Receipt Date: 20080721
  Transmission Date: 20090109
  Serious: Yes (Other)
  Sender: FDA-Public Use
  Company Number: MSER20080023

PATIENT
  Age: 57 Year
  Sex: Male

DRUGS (1)
  1. EXTENDED-RELEASE MORPHINE [Suspect]
     Indication: PAIN
     Dosage: 120 MG, TID, PER ORAL
     Route: 048

REACTIONS (7)
  - CONDITION AGGRAVATED [None]
  - DYSPNOEA [None]
  - DYSSOMNIA [None]
  - NOCTURIA [None]
  - SLEEP APNOEA SYNDROME [None]
  - SNORING [None]
  - SOMNOLENCE [None]
